APPROVED DRUG PRODUCT: MONTELUKAST SODIUM
Active Ingredient: MONTELUKAST SODIUM
Strength: EQ 4MG BASE/PACKET
Dosage Form/Route: GRANULE;ORAL
Application: A210431 | Product #001 | TE Code: AB
Applicant: TORRENT PHARMACEUTICALS LTD
Approved: Jul 31, 2018 | RLD: No | RS: No | Type: RX